FAERS Safety Report 14541102 (Version 1)
Quarter: 2018Q1

REPORT INFORMATION
  Report Type: Spontaneous
  Country: US (occurrence: US)
  Receive Date: 20180216
  Receipt Date: 20180216
  Transmission Date: 20180509
  Serious: No
  Sender: FDA-Public Use
  Company Number: US-GLAXOSMITHKLINE-US2018022245

PATIENT
  Age: 58 Year
  Sex: Male

DRUGS (1)
  1. ABREVA [Suspect]
     Active Substance: DOCOSANOL
     Indication: LIP BLISTER
     Dosage: UNK
     Dates: start: 20180202, end: 20180206

REACTIONS (2)
  - Condition aggravated [Recovered/Resolved]
  - Lip blister [Recovered/Resolved]

NARRATIVE: CASE EVENT DATE: 20180205
